FAERS Safety Report 4706817-8 (Version None)
Quarter: 2005Q3

REPORT INFORMATION
  Report Type: 
  Country: None (occurrence: None)
  Receive Date: 20050705
  Receipt Date: 20050628
  Transmission Date: 20060218
  Serious: Yes (Hospitalization)
  Sender: FDA-Public Use
  Company Number: MK200506-0365-1

PATIENT
  Age: 64 Year
  Sex: Female

DRUGS (1)
  1. NEUTROSPEC [Suspect]
     Indication: OSTEOMYELITIS
     Dosage: 18 MCI, ONE TIME, IV
     Route: 042
     Dates: start: 20050516, end: 20050516

REACTIONS (3)
  - CHEST PAIN [None]
  - DYSPNOEA [None]
  - FLUSHING [None]
